FAERS Safety Report 16231885 (Version 2)
Quarter: 2019Q2

REPORT INFORMATION
  Report Type: Report from Study
  Country: None (occurrence: DE)
  Receive Date: 20190424
  Receipt Date: 20190425
  Transmission Date: 20190711
  Serious: Yes (Death)
  Sender: FDA-Public Use
  Company Number: DE-ABBVIE-19S-062-2755537-00

PATIENT
  Age: 56 Year
  Sex: Male

DRUGS (2)
  1. VITAMIN D2 [Concomitant]
     Active Substance: ERGOCALCIFEROL
     Indication: PRODUCT USED FOR UNKNOWN INDICATION
     Route: 065
  2. DUODOPA [Suspect]
     Active Substance: CARBIDOPA\LEVODOPA
     Indication: PARKINSON^S DISEASE
     Dosage: MD 6.8 ML / CRD 3.3 ML/HR / CRN 2.0 ML/HR / ED 1.7 ML
     Route: 050
     Dates: start: 20180626, end: 20190423

REACTIONS (1)
  - Death [Fatal]

NARRATIVE: CASE EVENT DATE: 20190423
